FAERS Safety Report 5072130-5 (Version None)
Quarter: 2006Q3

REPORT INFORMATION
  Report Type: 
  Country: None (occurrence: None)
  Receive Date: 20060801
  Receipt Date: 20060720
  Transmission Date: 20061208
  Serious: Yes (Other)
  Sender: FDA-Public Use
  Company Number: 2006091392

PATIENT
  Age: 53 Year
  Sex: Female

DRUGS (2)
  1. LYRICA [Suspect]
     Indication: FIBROMYALGIA
  2. LYRICA [Suspect]
     Indication: NEUROPATHY PERIPHERAL

REACTIONS (6)
  - DIZZINESS [None]
  - DYSPHASIA [None]
  - DYSPNOEA [None]
  - HYPOAESTHESIA [None]
  - HYPOAESTHESIA FACIAL [None]
  - PANIC ATTACK [None]
